FAERS Safety Report 14609846 (Version 2)
Quarter: 2018Q3

REPORT INFORMATION
  Report Type: Spontaneous
  Country: DE (occurrence: DE)
  Receive Date: 20180307
  Receipt Date: 20180810
  Transmission Date: 20181010
  Serious: Yes (Hospitalization)
  Sender: FDA-Public Use
  Company Number: DE-TEVA-2018-DE-863508

PATIENT
  Age: 60 Year
  Sex: Male

DRUGS (6)
  1. PALLADON [Suspect]
     Active Substance: HYDROMORPHONE
     Indication: PAIN
     Dosage: 2.1 MILLIGRAM DAILY;
     Route: 037
     Dates: start: 2010
  2. PROMETHAZINE [Concomitant]
     Active Substance: PROMETHAZINE\PROMETHAZINE HYDROCHLORIDE
     Route: 065
  3. OPIPRAMOL [Concomitant]
     Active Substance: OPIPRAMOL
     Route: 065
  4. HYDROMORPHONE HCL [Suspect]
     Active Substance: HYDROMORPHONE HYDROCHLORIDE
     Indication: PAIN
     Dosage: 4 MILLIGRAM DAILY;
     Route: 048
     Dates: start: 201707
  5. DIAZEPAM. [Concomitant]
     Active Substance: DIAZEPAM
     Dosage: PRN
     Route: 065
  6. LAXOBERAL [Concomitant]
     Active Substance: SODIUM PICOSULFATE
     Route: 065

REACTIONS (4)
  - Depression [Not Recovered/Not Resolved]
  - Blindness [Not Recovered/Not Resolved]
  - Pain [Not Recovered/Not Resolved]
  - Anxiety disorder [Not Recovered/Not Resolved]

NARRATIVE: CASE EVENT DATE: 201706
